FAERS Safety Report 20647972 (Version 1)
Quarter: 2022Q1

REPORT INFORMATION
  Report Type: Spontaneous
  Country: US (occurrence: US)
  Receive Date: 20220329
  Receipt Date: 20220329
  Transmission Date: 20220423
  Serious: Yes (Other)
  Sender: FDA-Public Use
  Company Number: US-GLAXOSMITHKLINE-US2022GSK055724

PATIENT
  Sex: Female

DRUGS (2)
  1. ZANTAC [Suspect]
     Active Substance: RANITIDINE HYDROCHLORIDE
     Indication: Colon cancer
     Dosage: 75 MG, WE
     Route: 065
     Dates: start: 201005, end: 201504
  2. ZANTAC [Suspect]
     Active Substance: RANITIDINE HYDROCHLORIDE
     Indication: Colon cancer
     Dosage: 75 MG, WE
     Route: 065
     Dates: start: 201005, end: 201504

REACTIONS (1)
  - Colorectal cancer [Unknown]
